FAERS Safety Report 20249049 (Version 3)
Quarter: 2022Q1

REPORT INFORMATION
  Report Type: Report from Study
  Country: US (occurrence: US)
  Receive Date: 20211229
  Receipt Date: 20220201
  Transmission Date: 20220424
  Serious: Yes (Hospitalization)
  Sender: FDA-Public Use
  Company Number: US-PFIZER INC-202101833938

PATIENT
  Age: 63 Year
  Sex: Female
  Weight: 70.1 kg

DRUGS (3)
  1. PF-07104091 [Suspect]
     Active Substance: PF-07104091
     Dosage: UNK
     Route: 048
     Dates: start: 20211217, end: 20211219
  2. PALBOCICLIB [Suspect]
     Active Substance: PALBOCICLIB
     Dosage: FOR 21 DAYS FOLLOWED BY 7 DAYS OFF-TREATMENT FOR EACH 28-DAY CYCLE
     Route: 048
     Dates: start: 20211217, end: 20211219
  3. FULVESTRANT [Suspect]
     Active Substance: FULVESTRANT
     Dosage: 500 MG, ON DAYS 1, 15, 29 (CYCLE 2 DAY 1) AND THEN EVERY 4 WEEKS THEREAFTER
     Route: 030
     Dates: start: 20211217, end: 20211219

REACTIONS (1)
  - Sciatica [Recovered/Resolved]

NARRATIVE: CASE EVENT DATE: 20211220
